FAERS Safety Report 7066871-8 (Version None)
Quarter: 2010Q4

REPORT INFORMATION
  Report Type: 
  Country: None (occurrence: None)
  Receive Date: 20101027
  Receipt Date: 20101008
  Transmission Date: 20110411
  Serious: No
  Sender: FDA-Public Use
  Company Number: US-WYE-H18080710

PATIENT
  Sex: Female

DRUGS (3)
  1. PREMPRO [Suspect]
     Dosage: 0.625MG/2.5MG, UNKNOWN FREQUENCY
     Route: 048
  2. PREMPRO [Suspect]
     Dosage: 0.625MG/5MG, UNKNOWN FREQUENCY
     Route: 048
  3. FENTANYL CITRATE [Concomitant]

REACTIONS (1)
  - DRUG INEFFECTIVE [None]
